FAERS Safety Report 5627448-1 (Version None)
Quarter: 2008Q1

REPORT INFORMATION
  Report Type: 
  Country: None (occurrence: None)
  Receive Date: 20080214
  Receipt Date: 20080214
  Transmission Date: 20080703
  Serious: Yes (Other)
  Sender: FDA-Public Use
  Company Number: None

PATIENT
  Sex: Female
  Weight: 70 kg

DRUGS (4)
  1. BEVACIZUMAB 400MG AND 100MG VIAL GENENTECH [Suspect]
     Indication: OVARIAN CANCER
     Dosage: 700MG EVERY 2 WEEKS IV
     Route: 042
     Dates: start: 20070808, end: 20070808
  2. BEVACIZUMAB 400MG AND 100MG VIAL GENENTECH [Suspect]
     Indication: OVARIAN CANCER
     Dosage: 700MG EVERY 2 WEEKS IV
     Route: 042
     Dates: start: 20070920, end: 20070920
  3. BEVACIZUMAB 400MG AND 100MG VIAL GENENTECH [Suspect]
  4. PACLITAXEL [Concomitant]

REACTIONS (3)
  - BRAIN OEDEMA [None]
  - CEREBRAL HAEMORRHAGE [None]
  - MENTAL STATUS CHANGES [None]
